FAERS Safety Report 9543915 (Version 1)
Quarter: 2013Q2

REPORT INFORMATION
  Report Type: Spontaneous
  Country: US (occurrence: None)
  Receive Date: 20130524
  Receipt Date: 20130524
  Transmission Date: 20140414
  Serious: Yes (Other)
  Sender: FDA-Public Use
  Company Number: PHEH2013US004834

PATIENT
  Age: 62 Year
  Sex: Male
  Weight: 102 kg

DRUGS (8)
  1. GILENYA [Suspect]
     Indication: MULTIPLE SCLEROSIS
     Dosage: UKN, ORAL
     Route: 048
  2. AMPYRA (FAMPRIDINE) TABLET, 10MG [Concomitant]
  3. FLUOXETINE (FLUOXETINE) CAPSULE [Concomitant]
  4. TAMSULOSIN (TAMSULOSIN) CAPSULE [Concomitant]
  5. BACLOFEN (BACLOFEN) TABLET [Concomitant]
  6. CRESTOR (ROSUVASTATIN CALCIUM) TABLET [Concomitant]
  7. WARFARIN (WARFARIN) [Concomitant]
  8. PROVIGIL (MODAFINIL) TABLET [Concomitant]

REACTIONS (2)
  - Urinary tract infection [None]
  - Pyrexia [None]
